FAERS Safety Report 23531498 (Version 1)
Quarter: 2024Q1

REPORT INFORMATION
  Report Type: Spontaneous
  Country: US (occurrence: None)
  Receive Date: 20240215
  Receipt Date: 20240215
  Transmission Date: 20240410
  Serious: Yes (Other)
  Sender: FDA-Public Use
  Company Number: None

PATIENT
  Age: 23 Year
  Sex: Female

DRUGS (4)
  1. DUPIXENT [Suspect]
     Active Substance: DUPILUMAB
     Indication: Chronic sinusitis
     Dosage: FREQUENCY : EVERY OTHER WEEK;?
     Route: 058
     Dates: start: 20230731
  2. hYDROQUINONE 4% CREAM [Concomitant]
  3. TRIAMCINOLONE 0.5% OINT [Concomitant]
  4. LORATATINE [Concomitant]

REACTIONS (2)
  - Eye irritation [None]
  - Therapy change [None]

NARRATIVE: CASE EVENT DATE: 20240115
